FAERS Safety Report 14248647 (Version 3)
Quarter: 2018Q1

REPORT INFORMATION
  Report Type: Spontaneous
  Country: FR (occurrence: FR)
  Receive Date: 20171204
  Receipt Date: 20180105
  Transmission Date: 20180508
  Serious: Yes (Other)
  Sender: FDA-Public Use
  Company Number: FR-JNJFOC-20171134601

PATIENT
  Age: 55 Year
  Sex: Female

DRUGS (5)
  1. XEPLION [Suspect]
     Active Substance: PALIPERIDONE PALMITATE
     Indication: DELIRIUM
     Route: 030
     Dates: start: 20161220
  2. TEGRETOL [Concomitant]
     Active Substance: CARBAMAZEPINE
     Indication: BIPOLAR DISORDER
     Dosage: AT NIGHT
     Route: 048
     Dates: start: 20150920
  3. XEPLION [Suspect]
     Active Substance: PALIPERIDONE PALMITATE
     Indication: MANIA
     Route: 030
     Dates: start: 20161220
  4. TERCIAN [Concomitant]
     Active Substance: CYAMEMAZINE
     Indication: ANXIETY
     Route: 048
     Dates: start: 20160715
  5. XEROQUEL [Suspect]
     Active Substance: QUETIAPINE FUMARATE
     Indication: AFFECTIVE DISORDER
     Route: 048
     Dates: start: 20150920

REACTIONS (5)
  - Open angle glaucoma [Not Recovered/Not Resolved]
  - Product use in unapproved indication [Unknown]
  - Muscle contracture [Unknown]
  - Hyperprolactinaemia [Not Recovered/Not Resolved]
  - Off label use [Unknown]

NARRATIVE: CASE EVENT DATE: 20161220
